FAERS Safety Report 7704519-7 (Version None)
Quarter: 2011Q3

REPORT INFORMATION
  Report Type: 
  Country: None (occurrence: None)
  Receive Date: 20110823
  Receipt Date: 20110815
  Transmission Date: 20111222
  Serious: Yes (Other)
  Sender: FDA-Public Use
  Company Number: US-ASTRAZENECA-2011SE24210

PATIENT
  Age: 39 Year
  Sex: Male

DRUGS (4)
  1. SEROQUEL [Suspect]
     Indication: DEPRESSION
     Route: 048
     Dates: start: 20090101
  2. KEPPRA [Concomitant]
  3. PROTONICS [Concomitant]
  4. SEROQUEL [Suspect]
     Indication: SLEEP DISORDER THERAPY
     Route: 048
     Dates: start: 20090101

REACTIONS (5)
  - ROTATOR CUFF SYNDROME [None]
  - OFF LABEL USE [None]
  - HEAD INJURY [None]
  - ROTATOR CUFF REPAIR [None]
  - CONVULSION [None]
